FAERS Safety Report 11885074 (Version 2)
Quarter: 2016Q1

REPORT INFORMATION
  Report Type: Report from Study
  Country: AU (occurrence: AU)
  Receive Date: 20160104
  Receipt Date: 20160118
  Transmission Date: 20160526
  Serious: Yes (Hospitalization, Other)
  Sender: FDA-Public Use
  Company Number: AU-IPSEN BIOPHARMACEUTICALS, INC.-2015-08797

PATIENT
  Age: 37 Year
  Sex: Male
  Weight: 83 kg

DRUGS (2)
  1. CREON [Concomitant]
     Active Substance: PANCRELIPASE AMYLASE\PANCRELIPASE LIPASE\PANCRELIPASE PROTEASE
     Indication: PRODUCT USED FOR UNKNOWN INDICATION
  2. SOMATULINE AUTOGEL [Suspect]
     Active Substance: LANREOTIDE ACETATE
     Indication: PANCREATIC NEUROENDOCRINE TUMOUR
     Dosage: 120 MG
     Route: 058
     Dates: start: 20151009

REACTIONS (11)
  - Abdominal pain [Not Recovered/Not Resolved]
  - Pyrexia [Recovering/Resolving]
  - Disease progression [Not Recovered/Not Resolved]
  - Injection site mass [Not Recovered/Not Resolved]
  - Nausea [Recovering/Resolving]
  - Injection site pain [Recovering/Resolving]
  - Malaise [Not Recovered/Not Resolved]
  - Injection site pain [Recovered/Resolved]
  - Injection site nodule [Not Recovered/Not Resolved]
  - Fatigue [Recovering/Resolving]
  - Inappropriate schedule of drug administration [Unknown]

NARRATIVE: CASE EVENT DATE: 2015
